FAERS Safety Report 17561646 (Version 3)
Quarter: 2020Q2

REPORT INFORMATION
  Report Type: Spontaneous
  Country: BR (occurrence: BR)
  Receive Date: 20200319
  Receipt Date: 20200423
  Transmission Date: 20200713
  Serious: Yes (Hospitalization)
  Sender: FDA-Public Use
  Company Number: BR-CELGENEUS-BRA-20200304792

PATIENT
  Sex: Female

DRUGS (1)
  1. VIDAZA [Suspect]
     Active Substance: AZACITIDINE
     Indication: MYELODYSPLASTIC SYNDROME
     Dosage: 140 MILLIGRAM
     Route: 065
     Dates: start: 20191014

REACTIONS (10)
  - Red blood cell count decreased [Unknown]
  - Malaise [Unknown]
  - Vomiting [Not Recovered/Not Resolved]
  - Infection [Recovered/Resolved]
  - Pyrexia [Recovered/Resolved]
  - Platelet count decreased [Unknown]
  - Application site pain [Unknown]
  - White blood cell count decreased [Unknown]
  - Application site discolouration [Unknown]
  - Nausea [Unknown]
